FAERS Safety Report 10213345 (Version 1)
Quarter: 2014Q2

REPORT INFORMATION
  Report Type: Spontaneous
  Country: KR (occurrence: None)
  Receive Date: 20140529
  Receipt Date: 20140529
  Transmission Date: 20141212
  Serious: Yes (Hospitalization)
  Sender: FDA-Public Use
  Company Number: FK201401935

PATIENT
  Age: 64 Year
  Sex: Female

DRUGS (5)
  1. CISPLATIN [Suspect]
     Indication: LUNG ADENOCARCINOMA STAGE IV
  2. CISPLATIN [Suspect]
     Indication: METASTATIC NEOPLASM
  3. SIMVASTATIN [Suspect]
     Indication: DYSLIPIDAEMIA
  4. SIROLIMUS [Suspect]
     Indication: IMMUNOSUPPRESSANT DRUG THERAPY
  5. GEMCITABINE [Concomitant]

REACTIONS (10)
  - Drug interaction [None]
  - Rhabdomyolysis [None]
  - Renal failure acute [None]
  - Diarrhoea [None]
  - Escherichia sepsis [None]
  - Haemodialysis [None]
  - Pulmonary oedema [None]
  - Septic shock [None]
  - Urinary tract infection [None]
  - Disseminated intravascular coagulation [None]
